FAERS Safety Report 14448163 (Version 1)
Quarter: 2018Q1

REPORT INFORMATION
  Report Type: Spontaneous
  Country: US (occurrence: US)
  Receive Date: 20180126
  Receipt Date: 20180126
  Transmission Date: 20180509
  Serious: Yes (Life-Threatening, Hospitalization, Other)
  Sender: FDA-Public Use
  Company Number: US-BAUSCH-BL-2018-000157

PATIENT
  Age: 47 Year
  Sex: Female

DRUGS (2)
  1. BUPROPION. [Suspect]
     Active Substance: BUPROPION
     Indication: PRODUCT USED FOR UNKNOWN INDICATION
     Dosage: EXTENDED-RELEASE TABLET
     Route: 048
  2. ALPRAZOLAM. [Concomitant]
     Active Substance: ALPRAZOLAM
     Indication: PRODUCT USED FOR UNKNOWN INDICATION

REACTIONS (10)
  - Coma [Unknown]
  - Lethargy [Unknown]
  - Cardiac arrest [Unknown]
  - Sinus tachycardia [Unknown]
  - Status epilepticus [Unknown]
  - Intentional overdose [Unknown]
  - Hypotension [Unknown]
  - Areflexia [Unknown]
  - Pupillary reflex impaired [Unknown]
  - Electrocardiogram QRS complex prolonged [Unknown]
